FAERS Safety Report 9224653 (Version 1)
Quarter: 2013Q1

REPORT INFORMATION
  Report Type: Spontaneous
  Country: US (occurrence: None)
  Receive Date: 20120917
  Receipt Date: 20120917
  Transmission Date: 20140127
  Serious: Yes (Hospitalization)
  Sender: FDA-Public Use
  Company Number: 2012SP007664

PATIENT
  Sex: Female

DRUGS (1)
  1. IMPLANON ( 68 MG) [Suspect]
     Indication: CONTRACEPTION
     Dosage: 1 DF; SBDE

REACTIONS (1)
  - Thrombosis [None]
